FAERS Safety Report 20810811 (Version 2)
Quarter: 2022Q2

REPORT INFORMATION
  Report Type: Spontaneous
  Country: FR (occurrence: FR)
  Receive Date: 20220510
  Receipt Date: 20220516
  Transmission Date: 20220720
  Serious: Yes (Hospitalization)
  Sender: FDA-Public Use
  Company Number: FR-MORPHOSYS US-2022-MOR001829-FR

PATIENT

DRUGS (7)
  1. TAFASITAMAB [Suspect]
     Active Substance: TAFASITAMAB
     Indication: B-cell lymphoma stage IV
     Dosage: 828 MILLIGRAM, WEEKLY
     Route: 042
     Dates: start: 20220310
  2. LENALIDOMIDE [Suspect]
     Active Substance: LENALIDOMIDE
     Indication: B-cell lymphoma stage IV
     Dosage: 25 MILLIGRAM
     Route: 048
     Dates: start: 20220306, end: 20220326
  3. LOVENOX [Suspect]
     Active Substance: ENOXAPARIN SODIUM
     Indication: Thrombosis prophylaxis
     Dosage: 4000 INTERNATIONAL UNIT, QD, (1 INJECTION PER DAY, IN THE EVENING)
     Route: 058
  4. BACTRIM [Suspect]
     Active Substance: SULFAMETHOXAZOLE\TRIMETHOPRIM
     Indication: Infection prophylaxis
     Dosage: 1 DOSAGE FORM QOD (1 TAB IN THE MORNING ON MONDAY, WEDNESDAY AND FRIDAY);
     Route: 048
     Dates: start: 20220310, end: 20220326
  5. FILGRASTIM [Suspect]
     Active Substance: FILGRASTIM
     Indication: Chemotherapy toxicity attenuation
     Dosage: 30 MU PER DAY IF NEEDED (30 MU = 300 MICROGRAM FILGRASTIM)
     Route: 042
     Dates: start: 20220310
  6. ERYTHROPOIETIN [Suspect]
     Active Substance: ERYTHROPOIETIN
     Indication: Chemotherapy toxicity attenuation
     Dosage: 30000 INTERNATIONAL UNIT, ONCE A WEEK IF NEEDED
     Route: 058
     Dates: start: 20220310
  7. VALACYCLOVIR HYDROCHLORIDE [Suspect]
     Active Substance: VALACYCLOVIR HYDROCHLORIDE
     Indication: Infection prophylaxis
     Dosage: 1000 MILLIGRAM, QD (2 TABS PER DAY (MORNING AND EVENING) DAILY)
     Route: 048
     Dates: start: 20220310

REACTIONS (1)
  - Toxic skin eruption [Recovering/Resolving]

NARRATIVE: CASE EVENT DATE: 20220326
